FAERS Safety Report 21905592 (Version 1)
Quarter: 2023Q1

REPORT INFORMATION
  Report Type: Spontaneous
  Country: US (occurrence: None)
  Receive Date: 20230124
  Receipt Date: 20230124
  Transmission Date: 20230418
  Serious: No
  Sender: FDA-Public Use
  Company Number: None

PATIENT
  Age: 59 Year
  Sex: Male
  Weight: 95.4 kg

DRUGS (19)
  1. MOUNJARO [Suspect]
     Active Substance: TIRZEPATIDE
     Indication: Type 2 diabetes mellitus
     Dosage: FREQUENCY : WEEKLY;?
     Route: 058
  2. TESTOSTERONE CYPIONATE [Concomitant]
     Active Substance: TESTOSTERONE CYPIONATE
  3. EZETIMIBE [Concomitant]
     Active Substance: EZETIMIBE
  4. CELECOXIB [Concomitant]
     Active Substance: CELECOXIB
  5. ROSUVASTATIN [Concomitant]
     Active Substance: ROSUVASTATIN
  6. LATANOPROST [Concomitant]
     Active Substance: LATANOPROST
  7. SYNJARDY [Concomitant]
     Active Substance: EMPAGLIFLOZIN\METFORMIN HYDROCHLORIDE
  8. VARDENAFIL [Concomitant]
     Active Substance: VARDENAFIL HYDROCHLORIDE
  9. LISINOPRIL [Concomitant]
     Active Substance: LISINOPRIL
  10. MONTELUKAST [Concomitant]
     Active Substance: MONTELUKAST SODIUM
  11. ESOMEPRAZOLE [Concomitant]
     Active Substance: ESOMEPRAZOLE
  12. HERBALS\TURMERIC [Concomitant]
     Active Substance: HERBALS\TURMERIC
  13. FLAXSEED [Concomitant]
     Active Substance: FLAX SEED
  14. VITAMIN D3 [Concomitant]
     Active Substance: CHOLECALCIFEROL
  15. VITAMINS [Concomitant]
     Active Substance: VITAMINS
  16. ALPHA LIPOIC ACID [Concomitant]
     Active Substance: .ALPHA.-LIPOIC ACID
  17. ASPIRIN [Concomitant]
     Active Substance: ASPIRIN
  18. MAGNESIUM GLYCINATE [Concomitant]
     Active Substance: MAGNESIUM GLYCINATE
  19. LUTEIN [Concomitant]
     Active Substance: LUTEIN

REACTIONS (8)
  - Wrong technique in device usage process [None]
  - Complication associated with device [None]
  - Device leakage [None]
  - Product design issue [None]
  - Economic problem [None]
  - Product complaint [None]
  - Insurance issue [None]
  - Drug dose omission by device [None]

NARRATIVE: CASE EVENT DATE: 20230124
